FAERS Safety Report 9361955 (Version 1)
Quarter: 2013Q2

REPORT INFORMATION
  Report Type: Report from Study
  Country: US (occurrence: US)
  Receive Date: 20130621
  Receipt Date: 20130621
  Transmission Date: 20140414
  Serious: Yes (Other)
  Sender: FDA-Public Use
  Company Number: US-VERTEX PHARMACEUTICALS INC-2013-007318

PATIENT
  Age: 49 Year
  Sex: Female

DRUGS (3)
  1. VX-770 [Suspect]
     Indication: CYSTIC FIBROSIS
     Dosage: UNK
     Route: 048
     Dates: start: 201202, end: 201304
  2. VX-770 [Suspect]
     Dosage: UNK
     Route: 048
     Dates: start: 201304
  3. VX-770 [Suspect]
     Dosage: UNK
     Route: 048

REACTIONS (5)
  - Sinus operation [Unknown]
  - Hepatic enzyme increased [Unknown]
  - Gastrointestinal disorder [Unknown]
  - Constipation [Unknown]
  - Rash [Recovered/Resolved]
